FAERS Safety Report 11690620 (Version 3)
Quarter: 2015Q4

REPORT INFORMATION
  Report Type: Report from Study
  Country: CO (occurrence: CO)
  Receive Date: 20151102
  Receipt Date: 20151130
  Transmission Date: 20160304
  Serious: Yes (Other)
  Sender: FDA-Public Use
  Company Number: PHHY2015CO141737

PATIENT
  Sex: Female

DRUGS (2)
  1. AFINITOR [Suspect]
     Active Substance: EVEROLIMUS
     Indication: RENAL CANCER
  2. AFINITOR [Suspect]
     Active Substance: EVEROLIMUS
     Indication: BREAST CANCER
     Dosage: 10 MG, UNK
     Route: 048
     Dates: start: 20151030, end: 20151111

REACTIONS (7)
  - Hyperglycaemia [Unknown]
  - Abdominal pain [Unknown]
  - Drug intolerance [Unknown]
  - Nausea [Unknown]
  - Muscular weakness [Unknown]
  - Asthenia [Unknown]
  - Ascites [Unknown]
